FAERS Safety Report 24735601 (Version 1)
Quarter: 2024Q4

REPORT INFORMATION
  Report Type: Spontaneous
  Country: US (occurrence: US)
  Receive Date: 20241216
  Receipt Date: 20241216
  Transmission Date: 20250114
  Serious: No
  Sender: ROCHE
  Company Number: US-ROCHE-10000153190

PATIENT
  Sex: Female

DRUGS (2)
  1. XOLAIR [Suspect]
     Active Substance: OMALIZUMAB
     Indication: Idiopathic urticaria
     Dosage: 300MG/2ML.
     Route: 058
     Dates: start: 202410
  2. XOLAIR [Suspect]
     Active Substance: OMALIZUMAB

REACTIONS (1)
  - Hypersensitivity [Unknown]
